FAERS Safety Report 10328579 (Version 2)
Quarter: 2014Q3

REPORT INFORMATION
  Report Type: Spontaneous
  Country: US (occurrence: US)
  Receive Date: 20140721
  Receipt Date: 20140827
  Transmission Date: 20150326
  Serious: Yes (Hospitalization)
  Sender: FDA-Public Use
  Company Number: US-ELI_LILLY_AND_COMPANY-US201407003238

PATIENT
  Age: 52 Year
  Sex: Male

DRUGS (8)
  1. LEXAPRO [Concomitant]
     Active Substance: ESCITALOPRAM OXALATE
     Dosage: UNK, UNKNOWN
     Route: 065
  2. XELODA [Concomitant]
     Active Substance: CAPECITABINE
     Dosage: UNK, UNKNOWN
     Route: 065
  3. WARFARIN [Concomitant]
     Active Substance: WARFARIN
     Indication: DEEP VEIN THROMBOSIS
     Dosage: UNK, UNKNOWN
     Route: 065
  4. SYNTHROID [Concomitant]
     Active Substance: LEVOTHYROXINE SODIUM
     Dosage: UNK, UNKNOWN
     Route: 065
  5. NEXIUM [Concomitant]
     Active Substance: ESOMEPRAZOLE MAGNESIUM
     Dosage: UNK, UNKNOWN
     Route: 065
  6. LORAZEPAM. [Concomitant]
     Active Substance: LORAZEPAM
     Dosage: UNK, UNKNOWN
     Route: 065
  7. CYRAMZA [Suspect]
     Active Substance: RAMUCIRUMAB
     Indication: GASTRIC CANCER
     Dosage: UNK UNK, 2/M
     Dates: start: 20140625
  8. WARFARIN [Concomitant]
     Active Substance: WARFARIN
     Dosage: 5 MG, UNKNOWN
     Route: 065

REACTIONS (4)
  - Dizziness [Unknown]
  - Nausea [Unknown]
  - Loss of consciousness [Unknown]
  - Hypotension [Unknown]

NARRATIVE: CASE EVENT DATE: 20140627
